FAERS Safety Report 5599825-9 (Version None)
Quarter: 2008Q1

REPORT INFORMATION
  Report Type: 
  Country: None (occurrence: None)
  Receive Date: 20080118
  Receipt Date: 20080118
  Transmission Date: 20080703
  Serious: Yes (Hospitalization)
  Sender: FDA-Public Use
  Company Number: None

PATIENT
  Sex: Female
  Weight: 60.45 kg

DRUGS (2)
  1. CISPLATIN [Suspect]
     Dosage: 66 MG
  2. TOPOTECAN [Suspect]
     Dosage: .83 MG

REACTIONS (12)
  - ABDOMINAL PAIN [None]
  - ALANINE AMINOTRANSFERASE INCREASED [None]
  - BLOOD ALKALINE PHOSPHATASE INCREASED [None]
  - BLOOD CALCIUM DECREASED [None]
  - BLOOD UREA INCREASED [None]
  - CYSTITIS RADIATION [None]
  - HAEMATOCRIT DECREASED [None]
  - HAEMOGLOBIN DECREASED [None]
  - LEUKOPENIA [None]
  - NAUSEA [None]
  - PLATELET COUNT DECREASED [None]
  - VOMITING [None]
